FAERS Safety Report 21082400 (Version 1)
Quarter: 2022Q3

REPORT INFORMATION
  Report Type: Spontaneous
  Country: None (occurrence: DK)
  Receive Date: 20220714
  Receipt Date: 20220714
  Transmission Date: 20221027
  Serious: Yes (Life-Threatening, Hospitalization)
  Sender: FDA-Public Use
  Company Number: DK-Nostrum Laboratories, Inc.-2130877

PATIENT
  Age: 60 Year
  Sex: Female

DRUGS (2)
  1. CLARITHROMYCIN EXTENDED RELEASE [Suspect]
     Active Substance: CLARITHROMYCIN
     Indication: Pneumonia
     Route: 048
  2. TACROLIMUS [Interacting]
     Active Substance: TACROLIMUS
     Route: 048

REACTIONS (5)
  - Aggression [Recovered/Resolved]
  - Delusion [Recovered/Resolved]
  - Suicidal ideation [Recovered/Resolved]
  - Hypertension [Unknown]
  - Mutism [Recovered/Resolved]
